FAERS Safety Report 19849744 (Version 4)
Quarter: 2021Q4

REPORT INFORMATION
  Report Type: Spontaneous
  Country: KR (occurrence: KR)
  Receive Date: 20210917
  Receipt Date: 20211109
  Transmission Date: 20220303
  Serious: Yes (Hospitalization, Other)
  Sender: FDA-Public Use
  Company Number: KR-ORGANON-O2109KOR001142

PATIENT
  Age: 49 Year
  Sex: Female

DRUGS (2)
  1. ETONOGESTREL [Suspect]
     Active Substance: ETONOGESTREL
     Indication: Endometriosis
     Dosage: 1 IMPLANT, IN LEFT ARM
     Route: 059
     Dates: start: 20180718, end: 20210823
  2. ETONOGESTREL [Concomitant]
     Active Substance: ETONOGESTREL
     Dosage: 1 IMPLANT
     Route: 059
     Dates: start: 20150717, end: 20180718

REACTIONS (13)
  - General anaesthesia [Unknown]
  - Foreign body reaction [Unknown]
  - Complication of device removal [Recovered/Resolved]
  - Surgery [Unknown]
  - Emotional distress [Unknown]
  - Device placement issue [Recovered/Resolved]
  - Complication of device removal [Recovered/Resolved]
  - Complication associated with device [Recovered/Resolved]
  - Implant site scar [Unknown]
  - Fatigue [Unknown]
  - Pain [Unknown]
  - Incorrect product administration duration [Unknown]
  - Product use in unapproved indication [Unknown]

NARRATIVE: CASE EVENT DATE: 20180718
